FAERS Safety Report 12598439 (Version 1)
Quarter: 2016Q3

REPORT INFORMATION
  Report Type: Spontaneous
  Country: US (occurrence: US)
  Receive Date: 20160727
  Receipt Date: 20160727
  Transmission Date: 20161109
  Serious: No
  Sender: FDA-Public Use
  Company Number: US-MYLANLABS-2015M1027458

PATIENT
  Sex: Male
  Weight: 32.65 kg

DRUGS (3)
  1. CLONIDINE. [Suspect]
     Active Substance: CLONIDINE
     Indication: AFFECTIVE DISORDER
     Dosage: 0.5 MG, HS
     Route: 048
     Dates: start: 2014
  2. CLONIDINE. [Suspect]
     Active Substance: CLONIDINE
     Indication: INSOMNIA
  3. CLONIDINE. [Suspect]
     Active Substance: CLONIDINE
     Indication: OFF LABEL USE

REACTIONS (1)
  - Drug dose omission [Recovered/Resolved]
